FAERS Safety Report 4608953-3 (Version None)
Quarter: 2005Q1

REPORT INFORMATION
  Report Type: 
  Country: None (occurrence: None)
  Receive Date: 20050311
  Receipt Date: 20050225
  Transmission Date: 20050727
  Serious: Yes (Hospitalization)
  Sender: FDA-Public Use
  Company Number: 2000-BP-01357

PATIENT
  Age: 23 Year
  Sex: Female
  Weight: 55 kg

DRUGS (4)
  1. VIRAMUNE [Suspect]
     Indication: HIV INFECTION
     Dosage: 400 MG (200 MG, 200MG BID), PO
     Route: 048
     Dates: start: 19991102
  2. EMTRICITABINE (BLIND) [Concomitant]
  3. LAMIVUDINE (BLIND) [Concomitant]
  4. STAVUDINE [Concomitant]

REACTIONS (9)
  - ABORTION MISSED [None]
  - ABORTION SPONTANEOUS [None]
  - BLOOD HUMAN CHORIONIC GONADOTROPIN POSITIVE [None]
  - DRUG EXPOSURE DURING PREGNANCY [None]
  - OLIGOMENORRHOEA [None]
  - RETAINED PRODUCTS OF CONCEPTION [None]
  - TREATMENT NONCOMPLIANCE [None]
  - UTERINE ENLARGEMENT [None]
  - VAGINAL HAEMORRHAGE [None]
